FAERS Safety Report 6173005-0 (Version None)
Quarter: 2009Q2

REPORT INFORMATION
  Report Type: 
  Country: None (occurrence: None)
  Receive Date: 20090428
  Receipt Date: 20090415
  Transmission Date: 20091009
  Serious: No
  Sender: FDA-Public Use
  Company Number: 2009-195094-NL

PATIENT
  Age: 36 Year
  Sex: Female

DRUGS (1)
  1. NUVARING [Suspect]
     Indication: CONTRACEPTION
     Dosage: DF
     Dates: start: 20081201

REACTIONS (4)
  - EMOTIONAL DISTRESS [None]
  - FEAR OF DEATH [None]
  - THROMBOPHLEBITIS [None]
  - THROMBOSIS [None]
